FAERS Safety Report 15756415 (Version 2)
Quarter: 2019Q1

REPORT INFORMATION
  Report Type: Spontaneous
  Country: JP (occurrence: JP)
  Receive Date: 20181224
  Receipt Date: 20190117
  Transmission Date: 20190417
  Serious: Yes (Hospitalization, Other)
  Sender: FDA-Public Use
  Company Number: JP-GLAXOSMITHKLINE-JP2018JPN229756

PATIENT
  Age: 85 Year
  Sex: Male
  Weight: 54 kg

DRUGS (12)
  1. PA TABLETS [Concomitant]
     Active Substance: UNSPECIFIED INGREDIENT
     Dosage: UNK, TID
     Route: 048
     Dates: start: 20181218
  2. VALTREX [Suspect]
     Active Substance: VALACYCLOVIR HYDROCHLORIDE
     Indication: HERPES ZOSTER
     Dosage: 1000 MG, TID
     Route: 048
     Dates: start: 20181217, end: 20181219
  3. ALLOPURINOL TABLET [Concomitant]
     Active Substance: ALLOPURINOL
     Dosage: 100 MG, QD
     Route: 048
     Dates: start: 20181201
  4. TAMSULOSIN HYDROCHLORIDE OD [Concomitant]
     Active Substance: TAMSULOSIN HYDROCHLORIDE
     Dosage: 1 DF, QD
     Route: 048
     Dates: start: 20181108
  5. MIYA-BM TABLETS [Concomitant]
     Dosage: UNK, TID
     Route: 048
  6. ZOVIRAX [Concomitant]
     Active Substance: ACYCLOVIR
     Dosage: UNK, QID
     Route: 047
  7. MAGMITT TABLET [Concomitant]
     Dosage: 330 MG, BID
     Route: 048
     Dates: start: 20181201
  8. SODIUM PICOSULFATE ORAL SOLUTION [Concomitant]
     Indication: CONSTIPATION
     Dosage: UNK UNK, 6D
     Route: 048
     Dates: start: 20181201
  9. UNASYN (SULTAMICILLIN TOSILATE) [Concomitant]
     Dosage: 375 MG, BID
     Route: 048
     Dates: start: 20181218
  10. ARASENA-A [Concomitant]
     Active Substance: VIDARABINE
     Indication: HERPES ZOSTER
     Dosage: UNK, TID
     Route: 050
  11. JUNCHOTO [Concomitant]
     Active Substance: HERBALS
     Dosage: 2.5 G, TID
     Route: 048
     Dates: start: 20181201
  12. CRAVIT OPHTHALMIC SOLUTION [Concomitant]
     Dosage: UNK, TID
     Route: 047

REACTIONS (3)
  - Toxic encephalopathy [Unknown]
  - Pyrexia [Unknown]
  - Altered state of consciousness [Recovering/Resolving]

NARRATIVE: CASE EVENT DATE: 20181218
